FAERS Safety Report 7676759-7 (Version None)
Quarter: 2011Q3

REPORT INFORMATION
  Report Type: 
  Country: None (occurrence: None)
  Receive Date: 20110811
  Receipt Date: 20110804
  Transmission Date: 20111222
  Serious: Yes (Other)
  Sender: FDA-Public Use
  Company Number: US-PFIZER INC-2007096031

PATIENT
  Sex: Female
  Weight: 52.154 kg

DRUGS (6)
  1. ACETYLSALICYLIC ACID [Concomitant]
     Indication: CARDIAC DISORDER
     Dosage: DAILY
  2. XALATAN [Suspect]
     Indication: GLAUCOMA
     Dosage: 1 GTT, DAILY IN ACH EYE
     Route: 047
     Dates: start: 20060301
  3. ATENOLOL [Concomitant]
     Indication: BLOOD PRESSURE ABNORMAL
     Dosage: 25 MG, DAILY
  4. LISINOPRIL [Concomitant]
     Indication: BLOOD PRESSURE ABNORMAL
     Dosage: 10 MG, DAILY
     Route: 048
  5. AZOPT [Suspect]
     Indication: INTRAOCULAR PRESSURE INCREASED
     Dosage: UNK TWICE DAILY
     Route: 047
     Dates: start: 20110701, end: 20110701
  6. EVISTA [Concomitant]

REACTIONS (7)
  - ERYTHEMA OF EYELID [None]
  - EYE IRRITATION [None]
  - EYELID IRRITATION [None]
  - PAIN [None]
  - EYE PRURITUS [None]
  - INTRAOCULAR PRESSURE INCREASED [None]
  - SKIN BURNING SENSATION [None]
